FAERS Safety Report 6866742-3 (Version None)
Quarter: 2010Q2

REPORT INFORMATION
  Report Type: 
  Country: None (occurrence: None)
  Receive Date: 20100610
  Receipt Date: 20100226
  Transmission Date: 20101027
  Serious: No
  Sender: FDA-Public Use
  Company Number: 2010SP012594

PATIENT
  Age: 50 Year
  Sex: Female

DRUGS (5)
  1. SAPHRIS [Suspect]
     Indication: DRUG USE FOR UNKNOWN INDICATION
     Dosage: 5 MG; HS; 2.5 MG;QAM;
     Dates: start: 20100101
  2. SAPHRIS [Suspect]
     Indication: DRUG USE FOR UNKNOWN INDICATION
     Dosage: 5 MG; HS; 2.5 MG;QAM;
     Dates: start: 20100101
  3. DEPAKOTE [Concomitant]
  4. DIAZEPAM [Concomitant]
  5. CYMBALTA [Concomitant]

REACTIONS (2)
  - SOMNOLENCE [None]
  - URINARY INCONTINENCE [None]
